FAERS Safety Report 13043658 (Version 1)
Quarter: 2016Q4

REPORT INFORMATION
  Report Type: Spontaneous
  Country: US (occurrence: US)
  Receive Date: 20161219
  Receipt Date: 20161219
  Transmission Date: 20170207
  Serious: Yes (Other)
  Sender: FDA-Public Use
  Company Number: None

PATIENT
  Age: 68 Year
  Sex: Female

DRUGS (15)
  1. ASPIRIN. [Concomitant]
     Active Substance: ASPIRIN
  2. VITAMIN D3 [Concomitant]
     Active Substance: CHOLECALCIFEROL
  3. SIMVASTATIN. [Concomitant]
     Active Substance: SIMVASTATIN
  4. XGEVA [Concomitant]
     Active Substance: DENOSUMAB
  5. CARVEDILOL. [Concomitant]
     Active Substance: CARVEDILOL
  6. DEXILANT [Concomitant]
     Active Substance: DEXLANSOPRAZOLE
  7. IBRANCE [Suspect]
     Active Substance: PALBOCICLIB
     Indication: NEOPLASM MALIGNANT
     Route: 048
     Dates: start: 20160603
  8. CELECOXIB. [Concomitant]
     Active Substance: CELECOXIB
  9. SYNTHROID [Concomitant]
     Active Substance: LEVOTHYROXINE SODIUM
  10. PROBIOTIC [Concomitant]
     Active Substance: PROBIOTICS NOS
  11. MYRBETRIQ [Concomitant]
     Active Substance: MIRABEGRON
  12. AMLODIPINE [Concomitant]
     Active Substance: AMLODIPINE BESYLATE
  13. FASLODEX [Concomitant]
     Active Substance: FULVESTRANT
  14. CALCIUM [Concomitant]
     Active Substance: CALCIUM
  15. FLOLAN [Concomitant]
     Active Substance: EPOPROSTENOL SODIUM

REACTIONS (1)
  - Fatigue [None]

NARRATIVE: CASE EVENT DATE: 201612
